FAERS Safety Report 9409486 (Version 1)
Quarter: 2013Q3

REPORT INFORMATION
  Report Type: Spontaneous
  Country: FR (occurrence: FR)
  Receive Date: 20130719
  Receipt Date: 20130719
  Transmission Date: 20140515
  Serious: Yes (Other)
  Sender: FDA-Public Use
  Company Number: FR-ROCHE-1250930

PATIENT
  Age: 68 Year
  Sex: Male

DRUGS (4)
  1. ZELBORAF [Suspect]
     Indication: MALIGNANT MELANOMA
     Dosage: 240 MG
     Route: 048
     Dates: start: 20130307, end: 20130606
  2. INEXIUM [Concomitant]
     Route: 048
     Dates: start: 201203
  3. SPASFON (FRANCE) [Concomitant]
     Route: 048
     Dates: start: 201203
  4. PRIMPERAN (FRANCE) [Concomitant]
     Route: 048
     Dates: start: 201203

REACTIONS (1)
  - Glaucoma [Unknown]
